FAERS Safety Report 24169065 (Version 2)
Quarter: 2024Q3

REPORT INFORMATION
  Report Type: Spontaneous
  Country: US (occurrence: US)
  Receive Date: 20240802
  Receipt Date: 20240806
  Transmission Date: 20241017
  Serious: Yes (Other)
  Sender: PFIZER
  Company Number: US-PFIZER INC-202400227629

PATIENT
  Sex: Female

DRUGS (2)
  1. PACLITAXEL [Suspect]
     Active Substance: PACLITAXEL
     Dosage: 23 MG
     Route: 042
     Dates: start: 20240726
  2. PACLITAXEL [Suspect]
     Active Substance: PACLITAXEL
     Dosage: 11 MG
     Route: 042
     Dates: start: 20240727

REACTIONS (1)
  - Drug hypersensitivity [Not Recovered/Not Resolved]

NARRATIVE: CASE EVENT DATE: 20240726
